FAERS Safety Report 25003098 (Version 1)
Quarter: 2025Q1

REPORT INFORMATION
  Report Type: Spontaneous
  Country: US (occurrence: US)
  Receive Date: 20250224
  Receipt Date: 20250224
  Transmission Date: 20250408
  Serious: Yes (Hospitalization, Other)
  Sender: GRAVITI PHARMACEUTICALS PRIVATE LIMITED
  Company Number: US-GRAVITIPHARMA-GRA-2502-US-LIT-0095

PATIENT
  Age: 14 Year
  Sex: Male

DRUGS (12)
  1. BUPROPION HYDROCHLORIDE [Suspect]
     Active Substance: BUPROPION HYDROCHLORIDE
     Indication: Product used for unknown indication
     Route: 065
  2. FLUOXETINE [Suspect]
     Active Substance: FLUOXETINE HYDROCHLORIDE
     Indication: Product used for unknown indication
     Route: 065
  3. HALOPERIDOL [Suspect]
     Active Substance: HALOPERIDOL
     Indication: Agitation
     Route: 065
  4. HALOPERIDOL [Suspect]
     Active Substance: HALOPERIDOL
     Indication: Seizure
  5. LORAZEPAM [Suspect]
     Active Substance: LORAZEPAM
     Indication: Agitation
     Route: 065
  6. LORAZEPAM [Suspect]
     Active Substance: LORAZEPAM
     Indication: Seizure
  7. DIPHENHYDRAMINE [Suspect]
     Active Substance: DIPHENHYDRAMINE
     Indication: Agitation
     Route: 065
  8. DIPHENHYDRAMINE [Suspect]
     Active Substance: DIPHENHYDRAMINE
     Indication: Seizure
  9. MIDAZOLAM [Suspect]
     Active Substance: MIDAZOLAM
     Indication: Agitation
     Route: 065
  10. CYPROHEPTADINE [Suspect]
     Active Substance: CYPROHEPTADINE
     Indication: Agitation
     Route: 065
  11. CLONIDINE [Concomitant]
     Active Substance: CLONIDINE
     Indication: Depression
     Route: 065
  12. CLONIDINE [Concomitant]
     Active Substance: CLONIDINE
     Indication: Anxiety

REACTIONS (2)
  - Serotonin syndrome [Recovered/Resolved]
  - Product solubility abnormal [Unknown]
